FAERS Safety Report 23845100 (Version 1)
Quarter: 2024Q2

REPORT INFORMATION
  Report Type: Spontaneous
  Country: US (occurrence: US)
  Receive Date: 20240511
  Receipt Date: 20240511
  Transmission Date: 20240716
  Serious: No
  Sender: FDA-Public Use
  Company Number: US-CIPLA LTD.-2023US06556

PATIENT

DRUGS (2)
  1. ALBUTEROL [Suspect]
     Active Substance: ALBUTEROL
     Indication: COVID-19
     Dosage: 4 PUFFS AS NEEDED DEPENDING ON HER BREATHING ISSUES
     Route: 065
  2. ALBUTEROL [Suspect]
     Active Substance: ALBUTEROL
     Indication: Dyspnoea

REACTIONS (8)
  - Dyspnoea [Recovering/Resolving]
  - Illness [Recovering/Resolving]
  - Cough [Recovering/Resolving]
  - Intentional product use issue [Unknown]
  - Incorrect dose administered by device [Unknown]
  - Product dispensing issue [Unknown]
  - Product cleaning inadequate [Unknown]
  - Off label use [Unknown]

NARRATIVE: CASE EVENT DATE: 20231001
